FAERS Safety Report 12296313 (Version 1)
Quarter: 2016Q2

REPORT INFORMATION
  Report Type: Spontaneous
  Country: US (occurrence: US)
  Receive Date: 20160422
  Receipt Date: 20160422
  Transmission Date: 20160815
  Serious: No
  Sender: FDA-Public Use
  Company Number: US-ZYDUS-008786

PATIENT
  Sex: Male

DRUGS (1)
  1. ISOSORBIDE. [Suspect]
     Active Substance: ISOSORBIDE
     Indication: PROPHYLAXIS
     Dosage: ONE TABLET EVERY MORNING
     Route: 048

REACTIONS (1)
  - Blood pressure systolic increased [Not Recovered/Not Resolved]
